FAERS Safety Report 7170920-6 (Version None)
Quarter: 2010Q4

REPORT INFORMATION
  Report Type: 
  Country: None (occurrence: None)
  Receive Date: 20101217
  Receipt Date: 20101203
  Transmission Date: 20110411
  Serious: Yes (Other)
  Sender: FDA-Public Use
  Company Number: AR-AMGEN-ARGSP2010007490

PATIENT

DRUGS (2)
  1. ENBREL [Suspect]
     Indication: RHEUMATOID ARTHRITIS
     Dosage: 50 MG, WEEKLY
     Route: 058
     Dates: start: 20090501, end: 20100101
  2. OMEPRAZOLE [Concomitant]
     Dosage: UNK
     Route: 048

REACTIONS (4)
  - ANAEMIA [None]
  - ESCHERICHIA URINARY TRACT INFECTION [None]
  - HAEMATOCHEZIA [None]
  - URETHRITIS NONINFECTIVE [None]
